FAERS Safety Report 4814919-0 (Version None)
Quarter: 2005Q4

REPORT INFORMATION
  Report Type: 
  Country: None (occurrence: None)
  Receive Date: 20051028
  Receipt Date: 20020916
  Transmission Date: 20060501
  Serious: Yes (Hospitalization)
  Sender: FDA-Public Use
  Company Number: US-BRISTOL-MYERS SQUIBB COMPANY-12190914

PATIENT
  Age: 54 Year
  Sex: Male

DRUGS (8)
  1. CARBOPLATIN [Suspect]
     Indication: NON-SMALL CELL LUNG CANCER
     Dosage: THERAPY DATES: 12-DEC-2001 - 21-AUG-2002
     Route: 042
     Dates: start: 20020821, end: 20020821
  2. CETUXIMAB [Suspect]
     Indication: NON-SMALL CELL LUNG CANCER
     Dosage: LOADING DOSE 400 MG/M2 ON 21-DEC-2001.THERAPY DATES: 12-DEC-2001 - 21-AUG-2002
     Route: 042
     Dates: start: 20020821, end: 20020821
  3. GEMCITABINE [Suspect]
     Indication: NON-SMALL CELL LUNG CANCER
     Dosage: THERAPY DATES: 12-DEC-2001 - 21-AUG-2002
     Route: 042
     Dates: start: 20020821, end: 20020821
  4. CYANOCOBALAMIN-ZINC TANNATE COMPLEX [Suspect]
  5. NEURONTIN [Concomitant]
  6. MINOCYCLINE [Concomitant]
     Indication: RASH
  7. MULTI-VITAMIN [Concomitant]
  8. LIDOCAINE [Concomitant]
     Route: 061

REACTIONS (4)
  - DEEP VEIN THROMBOSIS [None]
  - MALIGNANT NEOPLASM PROGRESSION [None]
  - PLEURAL EFFUSION [None]
  - PULMONARY EMBOLISM [None]
